FAERS Safety Report 10028928 (Version 2)
Quarter: 2014Q2

REPORT INFORMATION
  Report Type: Spontaneous
  Country: FR (occurrence: FR)
  Receive Date: 20140321
  Receipt Date: 20140415
  Transmission Date: 20141212
  Serious: Yes (Hospitalization)
  Sender: FDA-Public Use
  Company Number: FR-VERTEX PHARMACEUTICALS INC-2014-001412

PATIENT
  Age: 63 Year
  Sex: Female

DRUGS (12)
  1. INCIVO [Suspect]
     Indication: PRODUCT USED FOR UNKNOWN INDICATION
     Dosage: 4 DF, QD
     Route: 048
     Dates: end: 20131128
  2. INCIVO [Suspect]
     Dosage: 6 DF, QD
     Route: 048
     Dates: start: 20130906, end: 20131104
  3. COPEGUS [Suspect]
     Indication: CHRONIC HEPATITIS C
     Dosage: 200 MG, BID
     Dates: start: 20131210
  4. COPEGUS [Suspect]
     Dosage: 400 MG, TID
     Route: 065
     Dates: start: 20130906
  5. COPEGUS [Suspect]
     Dosage: 800 MG, QD
     Route: 065
     Dates: start: 20131104
  6. COPEGUS [Suspect]
     Dosage: 200 MG, QD
     Route: 065
     Dates: start: 20131119
  7. COPEGUS [Suspect]
     Dosage: 200 MG, QD
     Route: 065
     Dates: start: 20131210, end: 20140324
  8. PEGASYS [Suspect]
     Indication: CHRONIC HEPATITIS C
     Dosage: 180 ?G, UNK
     Route: 058
     Dates: start: 20130906, end: 20140324
  9. AN UNKNOWN MEDICATION [Concomitant]
  10. ZESTORETIC [Concomitant]
  11. VICTOZA [Concomitant]
  12. AMAREL [Concomitant]

REACTIONS (6)
  - Depression [Recovered/Resolved]
  - Anaemia [Recovered/Resolved]
  - Hepatitis C [Unknown]
  - Renal impairment [Unknown]
  - Pruritus [Unknown]
  - Rash [Unknown]
